FAERS Safety Report 9472869 (Version 2)
Quarter: 2013Q4

REPORT INFORMATION
  Report Type: Spontaneous
  Country: US (occurrence: US)
  Receive Date: 20130823
  Receipt Date: 20131007
  Transmission Date: 20140711
  Serious: No
  Sender: FDA-Public Use
  Company Number: US-PFIZER INC-2013239759

PATIENT
  Age: 30 Year
  Sex: Male

DRUGS (16)
  1. VFEND [Suspect]
     Indication: PROPHYLAXIS
     Dosage: 200 MG, 2X/DAY
     Route: 048
     Dates: start: 20130227
  2. ACYCLOVIR [Concomitant]
     Dosage: 800 MG, 2X/DAY
  3. COMPAZINE [Concomitant]
     Indication: NAUSEA
     Dosage: 10 MG, 4X/DAY
  4. COMPAZINE [Concomitant]
     Indication: VOMITING
  5. DEXAMETHASONE [Concomitant]
     Dosage: UNK
  6. ERGOCALCIFEROL [Concomitant]
     Dosage: 1000 IU, DAILY
  7. FOLIC ACID [Concomitant]
     Dosage: 1 MG, 1X/DAY
  8. LORAZEPAM [Concomitant]
     Indication: NAUSEA
     Dosage: 0.5 MG EVERY 4H AS NEED
  9. MAGNESIUM [Concomitant]
     Dosage: 4 DF, 3X/DAY
     Route: 048
  10. PENICILLIN VK [Concomitant]
     Dosage: 500 MG, 2X/DAY
     Route: 048
  11. PENTAMIDINE [Concomitant]
     Dosage: UNK
  12. PREDNISONE [Concomitant]
     Dosage: 50 MG, DAILY
  13. PRILOSEC [Concomitant]
     Dosage: 20 MG, DAILY
  14. TACROLIMUS [Concomitant]
     Dosage: 1.5 MG, 2X/DAY
  15. TRIAMCINOLONE [Concomitant]
     Dosage: UNK
  16. URSODIOL [Concomitant]
     Dosage: 600 MG, 3X/DAY

REACTIONS (2)
  - Gastrooesophageal reflux disease [Recovering/Resolving]
  - Dyspepsia [Recovering/Resolving]
